FAERS Safety Report 21842990 (Version 1)
Quarter: 2023Q1

REPORT INFORMATION
  Report Type: Spontaneous
  Country: US (occurrence: None)
  Receive Date: 20230109
  Receipt Date: 20230109
  Transmission Date: 20230418
  Serious: Yes (Other)
  Sender: FDA-Public Use
  Company Number: None

PATIENT
  Age: 32 Year
  Sex: Female
  Weight: 72 kg

DRUGS (12)
  1. CETIRIZINE HYDROCHLORIDE TABLETS, 10 MG [Suspect]
     Active Substance: CETIRIZINE HYDROCHLORIDE
     Indication: Dust allergy
     Route: 048
  2. Blisolvi FE [Concomitant]
  3. ZYRTEC [Concomitant]
     Active Substance: CETIRIZINE HYDROCHLORIDE
  4. GUAIFENESIN [Concomitant]
     Active Substance: GUAIFENESIN
  5. AZELASTINE [Concomitant]
     Active Substance: AZELASTINE
  6. FLONASE [Concomitant]
     Active Substance: FLUTICASONE PROPIONATE
  7. IMODIUM [Concomitant]
     Active Substance: LOPERAMIDE HYDROCHLORIDE
  8. PEPTO-BISMOL [Concomitant]
     Active Substance: BISMUTH SUBSALICYLATE
  9. VITAMIN C [Concomitant]
     Active Substance: ASCORBIC ACID
  10. VITAMIN D3 [Concomitant]
     Active Substance: CHOLECALCIFEROL
  11. VITAMINS [Concomitant]
     Active Substance: VITAMINS
  12. women^s probiotics [Concomitant]

REACTIONS (9)
  - Pruritus [None]
  - Gastrointestinal disorder [None]
  - Decreased appetite [None]
  - Nausea [None]
  - Dyspepsia [None]
  - Diarrhoea [None]
  - Drug dependence [None]
  - Pruritus [None]
  - Therapy non-responder [None]

NARRATIVE: CASE EVENT DATE: 20230104
